FAERS Safety Report 10018062 (Version 1)
Quarter: 2014Q1

REPORT INFORMATION
  Report Type: Spontaneous
  Country: US (occurrence: US)
  Receive Date: 20140318
  Receipt Date: 20140318
  Transmission Date: 20141002
  Serious: Yes (Other)
  Sender: FDA-Public Use
  Company Number: US-BRISTOL-MYERS SQUIBB COMPANY-18905018

PATIENT
  Age: 57 Year
  Sex: Male
  Weight: 71.65 kg

DRUGS (2)
  1. ERBITUX [Suspect]
  2. OXYCODONE [Concomitant]
     Indication: PAIN

REACTIONS (3)
  - Rash papular [Unknown]
  - Asthenia [Unknown]
  - Pruritus generalised [Unknown]
